APPROVED DRUG PRODUCT: DOXEPIN HYDROCHLORIDE
Active Ingredient: DOXEPIN HYDROCHLORIDE
Strength: EQ 25MG BASE
Dosage Form/Route: CAPSULE;ORAL
Application: A070827 | Product #001
Applicant: SANDOZ INC
Approved: May 15, 1986 | RLD: No | RS: No | Type: DISCN